FAERS Safety Report 26056025 (Version 2)
Quarter: 2025Q4

REPORT INFORMATION
  Report Type: Report from Study
  Country: US (occurrence: US)
  Receive Date: 20251118
  Receipt Date: 20251124
  Transmission Date: 20260117
  Serious: Yes (Other)
  Sender: RECORDATI
  Company Number: US-ORPHANEU-2025007235

PATIENT
  Sex: Female
  Weight: 108.84 kg

DRUGS (9)
  1. ISTURISA [Suspect]
     Active Substance: OSILODROSTAT PHOSPHATE
     Indication: Cushing^s syndrome
     Dosage: 3 MILLIGRAM DAILY (2 MG AM 1 MG PM)
     Route: 048
     Dates: start: 20240420
  2. ISTURISA [Suspect]
     Active Substance: OSILODROSTAT PHOSPHATE
     Indication: Benign neoplasm of adrenal gland
  3. ALBUTEROL SULFATE [Concomitant]
     Active Substance: ALBUTEROL SULFATE
     Indication: Product used for unknown indication
     Dosage: 108 (90 BASE) AS NEEDED (INHALATION AEROSOL )
     Dates: start: 20220419
  4. BACLOFEN [Concomitant]
     Active Substance: BACLOFEN
     Indication: Product used for unknown indication
     Dosage: 10 MILLIGRAM, QD (10 MG TABLET)
     Route: 048
     Dates: start: 20230419
  5. IBUPROFEN [Concomitant]
     Active Substance: IBUPROFEN
     Indication: Product used for unknown indication
     Dosage: 200 MILLIGRAM, PRN (200 MG TABLET) AS NEEDED
     Route: 048
     Dates: start: 20190419
  6. NAC [Concomitant]
     Indication: Product used for unknown indication
     Dosage: 500 MILLIGRAM, QD (500 MG CAPSULE)
     Route: 048
     Dates: start: 20220419
  7. NAPROXEN [Concomitant]
     Active Substance: NAPROXEN
     Indication: Product used for unknown indication
     Dosage: 250 MILLIGRAM, PRN (250 MG TABLET) AS NEEDED
     Route: 048
     Dates: start: 20200419
  8. VITAMIN C [Concomitant]
     Active Substance: ASCORBIC ACID
     Indication: Product used for unknown indication
     Dosage: 250 MILLIGRAM, QD (250 MG TABLET)
     Route: 048
     Dates: start: 20220419
  9. VITAMIN D [Concomitant]
     Active Substance: VITAMIN D NOS
     Indication: Product used for unknown indication
     Dosage: 50 MICROGRAM, QD (50 MICROGRAM CAPSULE) (2000)
     Route: 048
     Dates: start: 20220419

REACTIONS (11)
  - Hyperadrenocorticism [Recovered/Resolved]
  - Glucocorticoid deficiency [Not Recovered/Not Resolved]
  - Pulse abnormal [Unknown]
  - Thirst [Not Recovered/Not Resolved]
  - Blood pressure increased [Recovered/Resolved]
  - Weight decreased [Not Recovered/Not Resolved]
  - Palpitations [Not Recovered/Not Resolved]
  - Myalgia [Not Recovered/Not Resolved]
  - Nausea [Not Recovered/Not Resolved]
  - Heart rate increased [Not Recovered/Not Resolved]
  - Abdominal pain [Not Recovered/Not Resolved]

NARRATIVE: CASE EVENT DATE: 20250101
